FAERS Safety Report 8949677 (Version 1)
Quarter: 2012Q4

REPORT INFORMATION
  Report Type: 
  Country: US (occurrence: US)
  Receive Date: 20121206
  Receipt Date: 20121206
  Transmission Date: 20130627
  Serious: Yes (Life-Threatening, Hospitalization)
  Sender: FDA-Public Use
  Company Number: US-009507513-1212USA001377

PATIENT
  Sex: Female

DRUGS (1)
  1. NUVARING [Suspect]
     Indication: CONTRACEPTION
     Dosage: 0.120 mg/day of etonogestrel and 0. 015 mg/day of ethinyl estradiol/21 days
     Route: 067

REACTIONS (1)
  - Pulmonary embolism [Recovering/Resolving]
